FAERS Safety Report 14502786 (Version 2)
Quarter: 2018Q1

REPORT INFORMATION
  Report Type: Report from Study
  Country: None (occurrence: CA)
  Receive Date: 20180208
  Receipt Date: 20180213
  Transmission Date: 20180509
  Serious: Yes (Other)
  Sender: FDA-Public Use
  Company Number: CA-ABBVIE-18S-028-2249860-00

PATIENT
  Sex: Male

DRUGS (1)
  1. KALETRA [Suspect]
     Active Substance: LOPINAVIR\RITONAVIR
     Indication: PRODUCT USED FOR UNKNOWN INDICATION
     Dosage: 200/50 MILLIGRAM
     Route: 048

REACTIONS (4)
  - Hepatic encephalopathy [Unknown]
  - Oedema peripheral [Unknown]
  - Rash [Unknown]
  - Cardiac failure congestive [Unknown]
